FAERS Safety Report 7002933-9 (Version None)
Quarter: 2010Q3

REPORT INFORMATION
  Report Type: 
  Country: None (occurrence: None)
  Receive Date: 20100920
  Receipt Date: 20100913
  Transmission Date: 20110219
  Serious: Yes (Other)
  Sender: FDA-Public Use
  Company Number: US-NAPPMUNDI-USA-2010-0047008

PATIENT
  Sex: Male

DRUGS (3)
  1. OXYCONTIN [Suspect]
     Indication: BACK PAIN
     Dosage: 200 MG, TID
  2. OXYCODONE HCL [Suspect]
     Indication: BREAKTHROUGH PAIN
     Dosage: 15 MG, UNK
  3. OXYCODONE HCL [Suspect]
     Dosage: 30 MG, UNK

REACTIONS (11)
  - BACK PAIN [None]
  - CHOKING [None]
  - COLD SWEAT [None]
  - DIARRHOEA [None]
  - DRUG INEFFECTIVE [None]
  - FOREIGN BODY [None]
  - GENERAL PHYSICAL HEALTH DETERIORATION [None]
  - HYPERHIDROSIS [None]
  - MIGRAINE [None]
  - PRODUCT QUALITY ISSUE [None]
  - VOMITING [None]
